FAERS Safety Report 25431184 (Version 5)
Quarter: 2025Q2

REPORT INFORMATION
  Report Type: Spontaneous
  Country: DE (occurrence: DE)
  Receive Date: 20250613
  Receipt Date: 20250626
  Transmission Date: 20250716
  Serious: Yes (Hospitalization, Other)
  Sender: JOHNSON AND JOHNSON
  Company Number: DE-002147023-NVSC2021DE070211

PATIENT
  Sex: Male

DRUGS (17)
  1. TREMFYA [Suspect]
     Active Substance: GUSELKUMAB
     Indication: Psoriatic arthropathy
     Route: 058
     Dates: start: 20210512, end: 20210701
  2. TREMFYA [Suspect]
     Active Substance: GUSELKUMAB
     Route: 065
     Dates: end: 20210701
  3. TREMFYA [Suspect]
     Active Substance: GUSELKUMAB
  4. COSENTYX [Suspect]
     Active Substance: SECUKINUMAB
     Indication: Psoriatic arthropathy
     Dosage: 150 MG, QMO;
     Dates: start: 20180803, end: 20200406
  5. COSENTYX [Suspect]
     Active Substance: SECUKINUMAB
     Dosage: 300 MG, QMO;
     Dates: start: 20200407, end: 20200506
  6. COSENTYX [Suspect]
     Active Substance: SECUKINUMAB
     Dosage: 150 MG, QMO
     Route: 065
     Dates: start: 20200707, end: 20200906
  7. COSENTYX [Suspect]
     Active Substance: SECUKINUMAB
     Dosage: 200 MG, QD
     Route: 065
     Dates: start: 20200107
  8. CELECOXIB [Suspect]
     Active Substance: CELECOXIB
     Indication: Psoriatic arthropathy
     Dosage: 200 MG, QD
     Route: 065
     Dates: start: 20200107, end: 20200120
  9. CELECOXIB [Suspect]
     Active Substance: CELECOXIB
     Dosage: 200 MG, QD; 07-JAN-2020 00:00
     Route: 065
     Dates: end: 20200120
  10. ADALIMUMAB [Suspect]
     Active Substance: ADALIMUMAB
     Indication: Psoriatic arthropathy
     Route: 065
     Dates: start: 20201007, end: 20210511
  11. ADALIMUMAB [Suspect]
     Active Substance: ADALIMUMAB
     Route: 065
     Dates: start: 20210702, end: 20210728
  12. ADALIMUMAB [Suspect]
     Active Substance: ADALIMUMAB
     Route: 065
     Dates: end: 20210511
  13. ADALIMUMAB [Suspect]
     Active Substance: ADALIMUMAB
     Route: 065
     Dates: end: 20210728
  14. TALTZ [Suspect]
     Active Substance: IXEKIZUMAB
     Indication: Psoriatic arthropathy
     Route: 065
     Dates: start: 20210728, end: 20240731
  15. TALTZ [Suspect]
     Active Substance: IXEKIZUMAB
     Route: 065
     Dates: end: 20240731
  16. BIMZELX [Suspect]
     Active Substance: BIMEKIZUMAB-BKZX
     Indication: Psoriatic arthropathy
     Route: 065
     Dates: start: 20240731
  17. BIMZELX [Suspect]
     Active Substance: BIMEKIZUMAB-BKZX
     Route: 065

REACTIONS (5)
  - Cholangitis [Recovered/Resolved]
  - Cholecystitis [Recovered/Resolved]
  - Cholangitis [Recovered/Resolved]
  - Cholecystitis acute [Recovered/Resolved]
  - Off label use [Unknown]
